FAERS Safety Report 21866431 (Version 2)
Quarter: 2023Q1

REPORT INFORMATION
  Report Type: Spontaneous
  Country: IT (occurrence: IT)
  Receive Date: 20230116
  Receipt Date: 20230117
  Transmission Date: 20230418
  Serious: Yes (Hospitalization, Other)
  Sender: FDA-Public Use
  Company Number: IT-SUNOVION-2023SUN000043

PATIENT

DRUGS (2)
  1. LURASIDONE HYDROCHLORIDE [Suspect]
     Active Substance: LURASIDONE HYDROCHLORIDE
     Indication: Acute psychosis
     Dosage: UNK
     Route: 048
  2. HALOPERIDOL [Suspect]
     Active Substance: HALOPERIDOL
     Indication: Acute psychosis
     Dosage: UNK
     Route: 065

REACTIONS (6)
  - Cytotoxic lesions of corpus callosum [Recovered/Resolved]
  - Catatonia [Unknown]
  - Pneumonia [Unknown]
  - Cytotoxic oedema [Unknown]
  - Cytokine increased [Unknown]
  - Off label use [Unknown]

NARRATIVE: CASE EVENT DATE: 20220101
